FAERS Safety Report 5018092-8 (Version None)
Quarter: 2006Q2

REPORT INFORMATION
  Report Type: 
  Country: None (occurrence: None)
  Receive Date: 20060530
  Receipt Date: 20060512
  Transmission Date: 20061013
  Serious: Yes (Hospitalization, Other)
  Sender: FDA-Public Use
  Company Number: 2005149622

PATIENT
  Age: 50 Year
  Sex: Male

DRUGS (12)
  1. NELFINAVIR MESILATE (NELFINAVIR MESILATE) [Suspect]
     Indication: HIV TEST POSITIVE
     Dosage: 3 IN 1 D, ORAL TOPICAL
     Route: 061
     Dates: start: 19971114, end: 19971203
  2. INDINAVIR (INDINAVIR) [Suspect]
     Indication: HIV TEST POSITIVE
     Dates: end: 19971203
  3. LAMIVUDINE + ZIDOVUDINE [Suspect]
     Indication: HIV TEST POSITIVE
     Dates: end: 19971203
  4. ZIDOVUDINE [Suspect]
     Indication: HIV TEST POSITIVE
     Dates: start: 19960312, end: 19971203
  5. EPIVIR [Suspect]
     Indication: HIV TEST POSITIVE
     Dates: start: 19960312, end: 19971203
  6. DAPSONE [Concomitant]
  7. NIZATIDINE [Concomitant]
  8. BENADRYL [Concomitant]
  9. IBUPROFEN [Concomitant]
  10. CYCLOBENZAPRINE HCL [Concomitant]
  11. METHADONE [Concomitant]
  12. FLUCONAZOLE [Concomitant]

REACTIONS (5)
  - BLOOD CREATINE PHOSPHOKINASE INCREASED [None]
  - ELECTROCARDIOGRAM QT PROLONGED [None]
  - NODAL ARRHYTHMIA [None]
  - TORSADE DE POINTES [None]
  - VENTRICULAR TACHYCARDIA [None]
